FAERS Safety Report 5131725-0 (Version None)
Quarter: 2006Q4

REPORT INFORMATION
  Report Type: 
  Country: None (occurrence: None)
  Receive Date: 20061016
  Receipt Date: 20061016
  Transmission Date: 20070319
  Serious: Yes (Hospitalization)
  Sender: FDA-Public Use
  Company Number: 2006121163

PATIENT
  Age: 64 Year
  Sex: Male
  Weight: 71 kg

DRUGS (3)
  1. ATORVASTATIN CALCIUM [Suspect]
     Indication: MYOCARDIAL ISCHAEMIA
     Dosage: (20 MG); ORAL
     Route: 048
     Dates: start: 20050317, end: 20060823
  2. ASPIRIN [Concomitant]
  3. PERINDOPRIL ERBUMINE [Concomitant]

REACTIONS (2)
  - ANGINA UNSTABLE [None]
  - HEPATIC FAILURE [None]
